FAERS Safety Report 6631517-7 (Version None)
Quarter: 2010Q1

REPORT INFORMATION
  Report Type: 
  Country: None (occurrence: None)
  Receive Date: 20100312
  Receipt Date: 20100302
  Transmission Date: 20100710
  Serious: Yes (Other)
  Sender: FDA-Public Use
  Company Number: PHEH2010US02820

PATIENT
  Sex: Female

DRUGS (5)
  1. SANDOSTATIN LAR [Suspect]
     Dosage: UNK
     Dates: start: 20091001
  2. INSULIN [Concomitant]
  3. ENZYMES [Concomitant]
  4. PROTONIX [Concomitant]
  5. BROMOCRIPTINE [Concomitant]

REACTIONS (2)
  - ALOPECIA [None]
  - THYROID DISORDER [None]
